FAERS Safety Report 18975415 (Version 1)
Quarter: 2021Q1

REPORT INFORMATION
  Report Type: Spontaneous
  Country: UA (occurrence: UA)
  Receive Date: 20210305
  Receipt Date: 20210305
  Transmission Date: 20210420
  Serious: Yes (Other)
  Sender: FDA-Public Use
  Company Number: UA-TEVA-2021-UA-1885700

PATIENT
  Sex: Female

DRUGS (1)
  1. DICLOFENAC?TEVA [Suspect]
     Active Substance: DICLOFENAC
     Route: 042

REACTIONS (4)
  - Injection site swelling [Not Recovered/Not Resolved]
  - Injection site abscess [Unknown]
  - Injection site pain [Not Recovered/Not Resolved]
  - Drug ineffective [Unknown]
